FAERS Safety Report 6201841-0 (Version None)
Quarter: 2009Q2

REPORT INFORMATION
  Report Type: 
  Country: None (occurrence: None)
  Receive Date: 20090520
  Receipt Date: 20090511
  Transmission Date: 20091009
  Serious: Yes (Hospitalization)
  Sender: FDA-Public Use
  Company Number: 2009US000179

PATIENT
  Age: 16 Month
  Sex: Male

DRUGS (4)
  1. MYCAMINE [Suspect]
     Indication: SYSTEMIC CANDIDA
     Dosage: 4.95 MG/KG, UID/QD; 4 MG/KG UID/QD
     Dates: start: 20071214, end: 20071228
  2. MYCAMINE [Suspect]
     Indication: SYSTEMIC CANDIDA
     Dosage: 4.95 MG/KG, UID/QD; 4 MG/KG UID/QD
     Dates: start: 20080224, end: 20080224
  3. NEUPOGEN [Concomitant]
  4. FLUCONAZOLE [Concomitant]

REACTIONS (7)
  - CALCINOSIS [None]
  - CANDIDIASIS [None]
  - CENTRAL LINE INFECTION [None]
  - HEPATOBLASTOMA [None]
  - KLEBSIELLA INFECTION [None]
  - OESOPHAGEAL STENOSIS [None]
  - PYELONEPHRITIS [None]
